FAERS Safety Report 19612647 (Version 3)
Quarter: 2021Q4

REPORT INFORMATION
  Report Type: Spontaneous
  Country: JP (occurrence: JP)
  Receive Date: 20210727
  Receipt Date: 20211118
  Transmission Date: 20220303
  Serious: Yes (Hospitalization, Other)
  Sender: FDA-Public Use
  Company Number: JP-SA-SAC20210723000120

PATIENT
  Age: 65 Year
  Sex: Male
  Weight: 58.7 kg

DRUGS (3)
  1. OXALIPLATIN [Suspect]
     Active Substance: OXALIPLATIN
     Indication: Gastric cancer
     Dosage: 130 MG/M2, QCY(130 MG/M2, DAY 1 WITH 3 WEEKS PER COURSE)
     Route: 041
  2. OXALIPLATIN [Suspect]
     Active Substance: OXALIPLATIN
     Dosage: UNK, QCY
     Route: 041
  3. GIMERACIL\OTERACIL\TEGAFUR [Suspect]
     Active Substance: GIMERACIL\OTERACIL\TEGAFUR
     Indication: Gastric cancer
     Dosage: UNK, QCY

REACTIONS (7)
  - Gastric stenosis [Unknown]
  - Obstruction gastric [Unknown]
  - Hiccups [Unknown]
  - Hypophagia [Unknown]
  - Abdominal distension [Unknown]
  - Gastric perforation [Unknown]
  - Therapy partial responder [Unknown]
